FAERS Safety Report 10103468 (Version 6)
Quarter: 2014Q3

REPORT INFORMATION
  Report Type: Spontaneous
  Country: GB (occurrence: US)
  Receive Date: 20140424
  Receipt Date: 20140917
  Transmission Date: 20150326
  Serious: Yes (Hospitalization, Disabling, Other)
  Sender: FDA-Public Use
  Company Number: US-009507513-1203USA02375

PATIENT
  Sex: Male

DRUGS (1)
  1. PROPECIA [Suspect]
     Active Substance: FINASTERIDE
     Indication: ALOPECIA
     Dosage: 1 MG, QD
     Route: 048
     Dates: start: 1997, end: 200812

REACTIONS (29)
  - Genital hypoaesthesia [Not Recovered/Not Resolved]
  - Anxiety [Not Recovered/Not Resolved]
  - Loss of libido [Not Recovered/Not Resolved]
  - Brain injury [Not Recovered/Not Resolved]
  - Dry skin [Not Recovered/Not Resolved]
  - Breast pain [Not Recovered/Not Resolved]
  - Penile size reduced [Not Recovered/Not Resolved]
  - Semen volume decreased [Not Recovered/Not Resolved]
  - Nervous system disorder [Unknown]
  - Breast enlargement [Not Recovered/Not Resolved]
  - Sexual dysfunction [Not Recovered/Not Resolved]
  - Penis injury [Not Recovered/Not Resolved]
  - Testicular pain [Not Recovered/Not Resolved]
  - Depression [Not Recovered/Not Resolved]
  - Orgasmic sensation decreased [Not Recovered/Not Resolved]
  - Hormone level abnormal [Not Recovered/Not Resolved]
  - Erectile dysfunction [Not Recovered/Not Resolved]
  - Emotional distress [Not Recovered/Not Resolved]
  - Sexual dysfunction [Not Recovered/Not Resolved]
  - Erectile dysfunction [Not Recovered/Not Resolved]
  - Gynaecomastia [Not Recovered/Not Resolved]
  - Libido decreased [Not Recovered/Not Resolved]
  - Dry eye [Not Recovered/Not Resolved]
  - Insomnia [Not Recovered/Not Resolved]
  - Surgery [Unknown]
  - Prostatic pain [Not Recovered/Not Resolved]
  - Dysarthria [Not Recovered/Not Resolved]
  - Cognitive disorder [Not Recovered/Not Resolved]
  - Hypoaesthesia [Unknown]

NARRATIVE: CASE EVENT DATE: 1999
